FAERS Safety Report 7737011-4 (Version None)
Quarter: 2011Q3

REPORT INFORMATION
  Report Type: 
  Country: None (occurrence: None)
  Receive Date: 20110902
  Receipt Date: 20110822
  Transmission Date: 20111222
  Serious: Yes (Other)
  Sender: FDA-Public Use
  Company Number: 2011MA012373

PATIENT
  Age: 40 Year
  Sex: Female

DRUGS (2)
  1. FENFLURAMINE [Suspect]
  2. PHENTERMINE HYDROCHLORIDE [Suspect]

REACTIONS (7)
  - PAIN IN EXTREMITY [None]
  - GANGRENE [None]
  - ANGIOPATHY [None]
  - HYPERSENSITIVITY [None]
  - VASCULITIS [None]
  - NO THERAPEUTIC RESPONSE [None]
  - PERIPHERAL ISCHAEMIA [None]
